FAERS Safety Report 6263498-2 (Version None)
Quarter: 2009Q3

REPORT INFORMATION
  Report Type: 
  Country: None (occurrence: None)
  Receive Date: 20090710
  Receipt Date: 20090319
  Transmission Date: 20100115
  Serious: No
  Sender: FDA-Public Use
  Company Number: A0774332A

PATIENT
  Age: 55 Year
  Sex: Female

DRUGS (8)
  1. TYKERB [Suspect]
     Indication: BREAST CANCER
     Dosage: 1250MG PER DAY
     Route: 048
     Dates: start: 20090314
  2. XELODA [Concomitant]
  3. SYNTHROID [Concomitant]
  4. IRON [Concomitant]
  5. VITAMIN B6 [Concomitant]
  6. NEURONTIN [Concomitant]
  7. RESTORIL [Concomitant]
  8. VICODIN [Concomitant]

REACTIONS (1)
  - NAUSEA [None]
